FAERS Safety Report 8151297-6 (Version None)
Quarter: 2012Q1

REPORT INFORMATION
  Report Type: 
  Country: None (occurrence: None)
  Receive Date: 20120220
  Receipt Date: 20120216
  Transmission Date: 20120608
  Serious: Yes (Other)
  Sender: FDA-Public Use
  Company Number: US-AMGEN-USASP2012010433

PATIENT
  Sex: Male

DRUGS (2)
  1. TAXOTERE [Concomitant]
     Indication: NEOPLASM MALIGNANT
     Dosage: UNK UNK, QMO
     Dates: start: 20100101
  2. NEULASTA [Suspect]
     Indication: CHEMOTHERAPY
     Dosage: 6 MG, UNK
     Dates: start: 20100101

REACTIONS (1)
  - PLATELET COUNT DECREASED [None]
